FAERS Safety Report 21482090 (Version 1)
Quarter: 2022Q4

REPORT INFORMATION
  Report Type: Spontaneous
  Country: TR (occurrence: TR)
  Receive Date: 20221020
  Receipt Date: 20221020
  Transmission Date: 20230112
  Serious: Yes (Other)
  Sender: FDA-Public Use
  Company Number: TR-NOVARTISPH-NVSC2022TR233365

PATIENT
  Age: 40 Year
  Sex: Female
  Weight: 39 kg

DRUGS (1)
  1. FINGOLIMOD [Suspect]
     Active Substance: FINGOLIMOD
     Indication: Multiple sclerosis
     Dosage: UNK UNK, QOD
     Route: 065

REACTIONS (6)
  - Cardiac disorder [Unknown]
  - Respiratory arrest [Unknown]
  - Heart rate increased [Unknown]
  - Weight decreased [Unknown]
  - Full blood count decreased [Unknown]
  - Product dose omission issue [Unknown]
